FAERS Safety Report 9207337 (Version 3)
Quarter: 2013Q2

REPORT INFORMATION
  Report Type: Spontaneous
  Country: US (occurrence: US)
  Receive Date: 20130403
  Receipt Date: 20130603
  Transmission Date: 20140414
  Serious: Yes (Other)
  Sender: FDA-Public Use
  Company Number: US-JNJFOC-20130317518

PATIENT
  Age: 86 Year
  Sex: Male
  Weight: 74.84 kg

DRUGS (4)
  1. XARELTO [Suspect]
     Indication: THROMBOSIS
     Route: 048
     Dates: start: 20130225, end: 20130327
  2. XARELTO [Suspect]
     Indication: DEEP VEIN THROMBOSIS
     Route: 048
     Dates: start: 20130225, end: 20130327
  3. BABY ASPIRIN [Suspect]
     Indication: THROMBOSIS
     Route: 048
  4. LEVOTHYROXINE [Concomitant]
     Indication: THYROID DISORDER
     Route: 048

REACTIONS (5)
  - Blood urine present [Recovered/Resolved]
  - Chromaturia [Recovered/Resolved]
  - Wrong technique in drug usage process [Recovered/Resolved]
  - Protein urine [Unknown]
  - Incorrect dose administered [Recovered/Resolved]
